FAERS Safety Report 10687554 (Version 1)
Quarter: 2015Q1

REPORT INFORMATION
  Report Type: Spontaneous
  Country: US (occurrence: US)
  Receive Date: 20150102
  Receipt Date: 20150102
  Transmission Date: 20150720
  Serious: No
  Sender: FDA-Public Use
  Company Number: US-009507513-1412USA012714

PATIENT
  Age: 48 Year
  Sex: Female

DRUGS (2)
  1. MAXALT [Suspect]
     Active Substance: RIZATRIPTAN BENZOATE
     Indication: MIGRAINE PROPHYLAXIS
     Dosage: TOTAL DAILY DOSE: 10 MG WITHIN A 24-HOUR PERIOD
     Route: 048
     Dates: start: 20141226
  2. ZOMIG [Suspect]
     Active Substance: ZOLMITRIPTAN
     Dosage: 5 MG, WITHIN A 24-HOUR PERIOD
     Dates: start: 20141226

REACTIONS (2)
  - Headache [Unknown]
  - Contraindicated drug administered [Unknown]

NARRATIVE: CASE EVENT DATE: 20141226
